FAERS Safety Report 14619233 (Version 1)
Quarter: 2018Q1

REPORT INFORMATION
  Report Type: Spontaneous
  Country: FR (occurrence: FR)
  Receive Date: 20180309
  Receipt Date: 20180309
  Transmission Date: 20180509
  Serious: Yes (Disabling)
  Sender: FDA-Public Use
  Company Number: FR-AUROBINDO-AUR-APL-2018-012500

PATIENT
  Age: 18 Year
  Sex: Female

DRUGS (4)
  1. PAROXETINE. [Suspect]
     Active Substance: PAROXETINE
     Indication: DEPRESSION
     Dosage: 20 MG, QD
     Route: 065
  2. MILNACIPRAN [Concomitant]
     Active Substance: MILNACIPRAN
     Indication: DEPRESSION
     Dosage: UNK ()
  3. CLOMIPRAMINE [Suspect]
     Active Substance: CLOMIPRAMINE
     Indication: DEPRESSION
     Dosage: 25 MG, QD
     Route: 065
  4. HYPERICUM                          /01166801/ [Suspect]
     Active Substance: HYPERICUM PERFORATUM
     Indication: DEPRESSION
     Dosage: 1 DF, UNK
     Route: 065

REACTIONS (1)
  - Yawning [Recovered/Resolved]
